FAERS Safety Report 9049722 (Version 2)
Quarter: 2013Q2

REPORT INFORMATION
  Report Type: Spontaneous
  Country: IT (occurrence: IT)
  Receive Date: 20130205
  Receipt Date: 20130405
  Transmission Date: 20140414
  Serious: Yes (Hospitalization)
  Sender: FDA-Public Use
  Company Number: IT-ASTRAZENECA-2013SE07452

PATIENT
  Age: 20850 Day
  Sex: Male

DRUGS (8)
  1. BRILIQUE [Suspect]
     Indication: ACUTE MYOCARDIAL INFARCTION
     Route: 048
     Dates: start: 20130126, end: 20130128
  2. ISOPROTERENOL [Suspect]
     Indication: ACUTE MYOCARDIAL INFARCTION
     Dosage: 0.2 MG/ML SOLUTION FOR INJECTION, 1 DF DAILY
     Route: 042
     Dates: start: 20130126, end: 20130127
  3. NORVASC(AMLODIPINE) [Concomitant]
  4. CARDIRENE (ACETYLSALICYLATE D, L-LYSINE) [Concomitant]
     Dosage: 160 MG POWDER FOR ORAL SOLUTION
  5. TORVAST(ATORVASTATIN) [Concomitant]
  6. NITRODERM TTS(NITROGLYCERINE) [Concomitant]
  7. TRIATEC(RAMIPRIL ) [Concomitant]
  8. CLEXANE(ENOXAPARIN) [Concomitant]

REACTIONS (3)
  - Sinus arrest [Recovering/Resolving]
  - Sinus bradycardia [Recovering/Resolving]
  - Off label use [Unknown]
